FAERS Safety Report 10008935 (Version 1)
Quarter: 2014Q1

REPORT INFORMATION
  Report Type: Spontaneous
  Country: FR (occurrence: FR)
  Receive Date: 20140313
  Receipt Date: 20140313
  Transmission Date: 20141002
  Serious: Yes (Other)
  Sender: FDA-Public Use
  Company Number: FR-ASTRAZENECA-2014SE16085

PATIENT
  Age: 35 Year
  Sex: Male

DRUGS (6)
  1. QUETIAPINE [Suspect]
     Indication: ACUTE PSYCHOSIS
     Dosage: 200 MG DIVIDED TWO TIMES IN A DAY, ON DAY 1
     Route: 048
  2. QUETIAPINE [Interacting]
     Indication: ACUTE PSYCHOSIS
     Dosage: 400 MG DIVIDED TWO TIMES IN A DAY, ON DAY 1
     Route: 048
  3. QUETIAPINE [Interacting]
     Indication: ACUTE PSYCHOSIS
     Dosage: 600 MG DIVIDED TWO TIMES IN A DAY, ON DAY 1
     Route: 048
  4. QUETIAPINE [Interacting]
     Indication: ACUTE PSYCHOSIS
     Route: 048
  5. ZUCLOPENTHIXOL [Interacting]
  6. LITHIUM [Concomitant]

REACTIONS (3)
  - Drug interaction [Recovered/Resolved]
  - Aggression [Recovered/Resolved]
  - Psychomotor hyperactivity [Recovered/Resolved]
